FAERS Safety Report 7168196-9 (Version None)
Quarter: 2010Q4

REPORT INFORMATION
  Report Type: 
  Country: None (occurrence: None)
  Receive Date: 20101216
  Receipt Date: 20101215
  Transmission Date: 20110411
  Serious: Yes (Other)
  Sender: FDA-Public Use
  Company Number: ZA-PFIZER INC-2010163147

PATIENT
  Age: 36 Year
  Sex: Male

DRUGS (2)
  1. TORISEL [Suspect]
     Indication: RENAL CELL CARCINOMA
     Dosage: 25 MG, UNK
     Dates: start: 20101129
  2. CORTICOSTEROID NOS [Suspect]

REACTIONS (3)
  - ACCIDENT [None]
  - ORAL CANDIDIASIS [None]
  - UPPER LIMB FRACTURE [None]
